FAERS Safety Report 11395319 (Version 4)
Quarter: 2017Q3

REPORT INFORMATION
  Report Type: Spontaneous
  Country: US (occurrence: US)
  Receive Date: 20150819
  Receipt Date: 20170920
  Transmission Date: 20171127
  Serious: No
  Sender: FDA-Public Use
  Company Number: US-ACTELION PHARMACEUTICALS US, INC.-A-US2015-122556

PATIENT
  Age: 66 Year
  Sex: Female

DRUGS (13)
  1. FISH OIL [Concomitant]
     Active Substance: FISH OIL
  2. TYLENOL [Concomitant]
     Active Substance: ACETAMINOPHEN
  3. SYSTANE (HYPROMELLOSE 2910 (4000 MPA.S)) [Concomitant]
     Active Substance: HYPROMELLOSE 2910 (4000 MPA.S)
  4. FUROSEMIDE. [Concomitant]
     Active Substance: FUROSEMIDE
  5. ATENOLOL. [Concomitant]
     Active Substance: ATENOLOL
  6. VITAMIN D [Concomitant]
     Active Substance: CHOLECALCIFEROL
  7. LOVAZA [Concomitant]
     Active Substance: OMEGA-3-ACID ETHYL ESTERS
  8. POTASSIUM CHLORIDE. [Concomitant]
     Active Substance: POTASSIUM CHLORIDE
  9. CALCIUM [Concomitant]
     Active Substance: CALCIUM
  10. VENTOLIN HFA [Concomitant]
     Active Substance: ALBUTEROL SULFATE
  11. DEXILANT [Concomitant]
     Active Substance: DEXLANSOPRAZOLE
  12. OPSUMIT [Suspect]
     Active Substance: MACITENTAN
     Indication: PULMONARY ARTERIAL HYPERTENSION
     Dosage: 10 MG, QD
     Route: 048
  13. VITAMIN D3 [Concomitant]
     Active Substance: CHOLECALCIFEROL

REACTIONS (4)
  - Diarrhoea [Unknown]
  - Unevaluable event [Recovering/Resolving]
  - Rash [Unknown]
  - Sinusitis [Not Recovered/Not Resolved]

NARRATIVE: CASE EVENT DATE: 20150802
